FAERS Safety Report 15515771 (Version 5)
Quarter: 2019Q1

REPORT INFORMATION
  Report Type: Spontaneous
  Country: PT (occurrence: PT)
  Receive Date: 20181017
  Receipt Date: 20190122
  Transmission Date: 20190417
  Serious: Yes (Hospitalization, Other)
  Sender: FDA-Public Use
  Company Number: PT-AUROBINDO-AUR-APL-2018-049756

PATIENT
  Age: 78 Year
  Sex: Male

DRUGS (1)
  1. CIPROFLOXACIN. [Suspect]
     Active Substance: CIPROFLOXACIN
     Indication: URINARY TRACT INFECTION
     Dosage: UNK
     Route: 065

REACTIONS (14)
  - Rash pruritic [Recovered/Resolved]
  - Rash generalised [Recovering/Resolving]
  - Cough [Recovered/Resolved]
  - Bacterial infection [Unknown]
  - Odynophagia [Recovered/Resolved]
  - Fatigue [Recovered/Resolved]
  - Pharyngeal erythema [Recovered/Resolved]
  - Rash maculo-papular [Recovered/Resolved]
  - Toxic epidermal necrolysis [Recovered/Resolved]
  - Mouth ulceration [Recovered/Resolved]
  - Pyrexia [Recovered/Resolved]
  - Rash macular [Recovering/Resolving]
  - Condition aggravated [Unknown]
  - Stevens-Johnson syndrome [Recovered/Resolved]

NARRATIVE: CASE EVENT DATE: 20181001
